FAERS Safety Report 12121935 (Version 1)
Quarter: 2016Q1

REPORT INFORMATION
  Report Type: Spontaneous
  Country: US (occurrence: US)
  Receive Date: 20160226
  Receipt Date: 20160226
  Transmission Date: 20160526
  Serious: Yes (Disabling)
  Sender: FDA-Public Use
  Company Number: GXBR2016US000755

PATIENT
  Sex: Male

DRUGS (1)
  1. METOCLOPRAMIDE TABLETS USP [Suspect]
     Active Substance: METOCLOPRAMIDE
     Indication: PRODUCT USED FOR UNKNOWN INDICATION
     Dosage: 5-10MG 30 MINUTES BEFORE MEALS AND HS
     Route: 048

REACTIONS (6)
  - Movement disorder [Unknown]
  - Excessive eye blinking [Unknown]
  - Tardive dyskinesia [Unknown]
  - Dyskinesia [Unknown]
  - Extrapyramidal disorder [Unknown]
  - Grimacing [Unknown]
